FAERS Safety Report 8914889 (Version 1)
Quarter: 2012Q4

REPORT INFORMATION
  Report Type: 
  Country: US (occurrence: US)
  Receive Date: 20121117
  Receipt Date: 20121117
  Transmission Date: 20130627
  Serious: No
  Sender: FDA-Public Use
  Company Number: US-009507513-1211USA005986

PATIENT
  Age: 6 Year
  Sex: Female

DRUGS (2)
  1. CLARITIN CHEWABLE TABLETS [Suspect]
     Indication: SEASONAL ALLERGY
     Dosage: 10 mg, qd
     Route: 048
     Dates: start: 2012
  2. CLARITIN CHEWABLE TABLETS [Suspect]
     Dosage: 10 mg, bid
     Route: 048
     Dates: start: 2012

REACTIONS (1)
  - Overdose [Recovering/Resolving]
